FAERS Safety Report 15542193 (Version 1)
Quarter: 2018Q4

REPORT INFORMATION
  Report Type: Spontaneous
  Country: US (occurrence: US)
  Receive Date: 20181023
  Receipt Date: 20181023
  Transmission Date: 20190205
  Serious: No
  Sender: FDA-Public Use
  Company Number: US-ABBVIE-18S-163-2301687-00

PATIENT
  Sex: Female

DRUGS (1)
  1. LUPRON DEPOT [Suspect]
     Active Substance: LEUPROLIDE ACETATE
     Indication: UTERINE LEIOMYOMA
     Route: 065

REACTIONS (19)
  - Feeling of body temperature change [Unknown]
  - Breast pain [Unknown]
  - Ovulation pain [Unknown]
  - Gastrointestinal pain [Unknown]
  - Uterine pain [Unknown]
  - Abdominal pain [Unknown]
  - Swelling [Unknown]
  - Gastrointestinal disorder [Unknown]
  - Uterine cervical pain [Unknown]
  - Vulvovaginal pain [Unknown]
  - Vaginal haemorrhage [Unknown]
  - Product use issue [Unknown]
  - Bladder disorder [Unknown]
  - Breast disorder [Unknown]
  - Nausea [Unknown]
  - Abdominal distension [Unknown]
  - Pelvic discomfort [Unknown]
  - Hyperaesthesia [Unknown]
  - Pain [Unknown]
